FAERS Safety Report 19806889 (Version 1)
Quarter: 2021Q3

REPORT INFORMATION
  Report Type: Spontaneous
  Country: US (occurrence: US)
  Receive Date: 20210907
  Receipt Date: 20210907
  Transmission Date: 20211014
  Serious: No
  Sender: FDA-Public Use
  Company Number: None

PATIENT
  Age: 55 Year
  Sex: Female

DRUGS (1)
  1. COPAXONE [Suspect]
     Active Substance: GLATIRAMER ACETATE
     Indication: MULTIPLE SCLEROSIS
     Route: 058
     Dates: start: 2016, end: 202104

REACTIONS (4)
  - Injection site indentation [None]
  - Muscle spasms [None]
  - Poor quality sleep [None]
  - Tremor [None]

NARRATIVE: CASE EVENT DATE: 202101
